FAERS Safety Report 10818456 (Version 1)
Quarter: 2015Q1

REPORT INFORMATION
  Report Type: Spontaneous
  Country: NO (occurrence: NO)
  Receive Date: 20150218
  Receipt Date: 20150218
  Transmission Date: 20150721
  Serious: Yes (Other)
  Sender: FDA-Public Use
  Company Number: NO-PFIZER INC-2015062841

PATIENT
  Age: 28 Year
  Sex: Female
  Weight: 115 kg

DRUGS (1)
  1. EFEXOR DEPOT [Suspect]
     Active Substance: VENLAFAXINE HYDROCHLORIDE
     Indication: DEPRESSION
     Dosage: 225 MG, DAILY
     Route: 048
     Dates: start: 20120101

REACTIONS (3)
  - Hypomania [Unknown]
  - Pre-eclampsia [Unknown]
  - Nausea [Unknown]
